FAERS Safety Report 15759949 (Version 1)
Quarter: 2018Q4

REPORT INFORMATION
  Report Type: Spontaneous
  Country: GB (occurrence: GB)
  Receive Date: 20181226
  Receipt Date: 20181226
  Transmission Date: 20190205
  Serious: Yes (Other)
  Sender: FDA-Public Use
  Company Number: GB-ACCORD-098273

PATIENT
  Age: 69 Year
  Sex: Female
  Weight: 66.67 kg

DRUGS (5)
  1. AMITRIPTYLINE [Suspect]
     Active Substance: AMITRIPTYLINE
     Indication: PRODUCT USED FOR UNKNOWN INDICATION
     Route: 048
  2. LANSOPRAZOLE. [Concomitant]
     Active Substance: LANSOPRAZOLE
     Dates: start: 20180212
  3. SULFASALAZINE. [Concomitant]
     Active Substance: SULFASALAZINE
     Dates: start: 20171211
  4. TRAMADOL. [Concomitant]
     Active Substance: TRAMADOL
     Dates: start: 20180213
  5. METOCLOPRAMIDE. [Concomitant]
     Active Substance: METOCLOPRAMIDE
     Dosage: 1 TABLET THREE TIMES A DAY.
     Dates: start: 20180212

REACTIONS (1)
  - Hyponatraemia [Recovering/Resolving]
